FAERS Safety Report 19360960 (Version 1)
Quarter: 2021Q2

REPORT INFORMATION
  Report Type: Spontaneous
  Country: TH (occurrence: TH)
  Receive Date: 20210602
  Receipt Date: 20210602
  Transmission Date: 20210717
  Serious: Yes (Death, Other)
  Sender: FDA-Public Use
  Company Number: TH-BAYER-2021-149259

PATIENT
  Age: 74 Year
  Sex: Male

DRUGS (1)
  1. ULTRAVIST [Suspect]
     Active Substance: IOPROMIDE
     Indication: COMPUTERISED TOMOGRAM THORAX
     Dosage: UNK, ONCE
     Route: 042
     Dates: start: 20210527, end: 20210527

REACTIONS (2)
  - Pneumothorax [Fatal]
  - Pulse absent [Fatal]

NARRATIVE: CASE EVENT DATE: 20210527
